FAERS Safety Report 9789463 (Version 1)
Quarter: 2013Q4

REPORT INFORMATION
  Report Type: Report from Study
  Country: DE (occurrence: DE)
  Receive Date: 20131231
  Receipt Date: 20131231
  Transmission Date: 20140711
  Serious: Yes (Other)
  Sender: FDA-Public Use
  Company Number: DE-ROCHE-1326018

PATIENT
  Sex: Female
  Weight: 70 kg

DRUGS (2)
  1. RANIBIZUMAB [Suspect]
     Indication: DIABETIC RETINAL OEDEMA
     Route: 050
     Dates: start: 20120612
  2. RANIBIZUMAB [Suspect]
     Indication: VISUAL IMPAIRMENT
     Route: 050
     Dates: start: 20120815

REACTIONS (3)
  - Retinal aneurysm [Recovered/Resolved]
  - Retinal disorder [Recovered/Resolved]
  - Retinal ischaemia [Recovered/Resolved]
